FAERS Safety Report 8927128 (Version 2)
Quarter: 2012Q4

REPORT INFORMATION
  Report Type: 
  Country: DE (occurrence: DE)
  Receive Date: 20121127
  Receipt Date: 20121206
  Transmission Date: 20130627
  Serious: Yes (Other)
  Sender: FDA-Public Use
  Company Number: DE-PFIZER INC-2012295754

PATIENT
  Sex: Female
  Weight: 3.72 kg

DRUGS (3)
  1. SERTRALINE HCL [Suspect]
     Indication: DEPRESSION
     Dosage: 50 mg, per day; beginning unclear, taken until delivery; trimester: long term exposure
     Route: 064
  2. MIRTAZAPINE [Suspect]
     Indication: DEPRESSION
     Dosage: 15 mg, per day, trimester: long term exposure
     Route: 064
     Dates: start: 201112
  3. CENTRUM MATERNA [Concomitant]
     Indication: PROPHYLAXIS OF NEURAL TUBE DEFECT
     Dosage: 0.4 mg, per day; 5.3 - 39.4 gestational week
     Route: 064

REACTIONS (4)
  - Maternal exposure timing unspecified [Recovered/Resolved]
  - Infantile apnoeic attack [Recovered/Resolved]
  - Convulsion [Recovered/Resolved]
  - Myoclonus [Recovered/Resolved]
